FAERS Safety Report 13254093 (Version 1)
Quarter: 2017Q1

REPORT INFORMATION
  Report Type: Spontaneous
  Country: AT (occurrence: AT)
  Receive Date: 20170221
  Receipt Date: 20170221
  Transmission Date: 20170428
  Serious: Yes (Hospitalization)
  Sender: FDA-Public Use
  Company Number: AT-MERCK KGAA-1063362

PATIENT
  Sex: Male

DRUGS (1)
  1. NOVOTHYROX [Suspect]
     Active Substance: LEVOTHYROXINE SODIUM
     Indication: HYPOTHYROIDISM
     Route: 050

REACTIONS (6)
  - Neonatal thyrotoxicosis [Recovered/Resolved]
  - Pulmonary hypertension [Recovered/Resolved]
  - Neonatal asphyxia [Recovered/Resolved]
  - Cardiac failure [Recovered/Resolved]
  - Neonatal respiratory acidosis [Recovered/Resolved]
  - Foetal arrhythmia [Recovered/Resolved]
